FAERS Safety Report 13611133 (Version 2)
Quarter: 2017Q2

REPORT INFORMATION
  Report Type: Spontaneous
  Country: US (occurrence: US)
  Receive Date: 20170605
  Receipt Date: 20170622
  Transmission Date: 20170830
  Serious: No
  Sender: FDA-Public Use
  Company Number: US-BIOGEN-2017BI00410860

PATIENT
  Sex: Female

DRUGS (2)
  1. AVONEX [Suspect]
     Active Substance: INTERFERON BETA-1A
     Route: 065
     Dates: start: 20011129
  2. AVONEX [Suspect]
     Active Substance: INTERFERON BETA-1A
     Indication: MULTIPLE SCLEROSIS
     Route: 065
     Dates: start: 20000105

REACTIONS (13)
  - Memory impairment [Unknown]
  - Scoliosis [Unknown]
  - Drug dose omission [Not Recovered/Not Resolved]
  - Ear infection [Unknown]
  - Sensitivity to weather change [Unknown]
  - Fatigue [Unknown]
  - Limb discomfort [Unknown]
  - Infection [Unknown]
  - Upper limb fracture [Not Recovered/Not Resolved]
  - Nausea [Unknown]
  - Dysphonia [Unknown]
  - Weight decreased [Unknown]
  - Malaise [Not Recovered/Not Resolved]
